FAERS Safety Report 13149819 (Version 2)
Quarter: 2017Q3

REPORT INFORMATION
  Report Type: Other
  Country: GB (occurrence: GB)
  Receive Date: 20170125
  Receipt Date: 20170829
  Transmission Date: 20171127
  Serious: Yes (Hospitalization, Other)
  Sender: FDA-Public Use
  Company Number: GB-GLENMARK PHARMACEUTICALS-2017GMK025985

PATIENT

DRUGS (7)
  1. GABAPENTIN. [Suspect]
     Active Substance: GABAPENTIN
     Indication: PAIN
  2. GABAPENTIN. [Suspect]
     Active Substance: GABAPENTIN
     Indication: MUSCULAR WEAKNESS
  3. MORPHINE SULFATE. [Suspect]
     Active Substance: MORPHINE SULFATE
     Indication: MYOPATHY
  4. GABAPENTIN. [Suspect]
     Active Substance: GABAPENTIN
     Indication: INCLUSION BODY MYOSITIS
     Dosage: UNK
     Route: 065
  5. GABAPENTIN. [Suspect]
     Active Substance: GABAPENTIN
     Indication: MYOSITIS
  6. GABAPENTIN. [Suspect]
     Active Substance: GABAPENTIN
     Indication: MYOPATHY
  7. MORPHINE SULFATE. [Suspect]
     Active Substance: MORPHINE SULFATE
     Indication: PAIN
     Dosage: UNK
     Route: 065

REACTIONS (38)
  - Emotional disorder [Not Recovered/Not Resolved]
  - Mental impairment [Not Recovered/Not Resolved]
  - Lung disorder [Unknown]
  - Morbid thoughts [Unknown]
  - Mania [Not Recovered/Not Resolved]
  - Agitation [Unknown]
  - Confusional state [Not Recovered/Not Resolved]
  - Arthralgia [Unknown]
  - Myalgia [Unknown]
  - General physical health deterioration [Unknown]
  - Mental status changes [Not Recovered/Not Resolved]
  - Movement disorder [Not Recovered/Not Resolved]
  - Anxiety [Unknown]
  - Loss of personal independence in daily activities [Not Recovered/Not Resolved]
  - Communication disorder [Not Recovered/Not Resolved]
  - Anger [Unknown]
  - Dysphagia [Unknown]
  - Respiratory tract infection [Unknown]
  - Back pain [Unknown]
  - Feeling abnormal [Not Recovered/Not Resolved]
  - Eye movement disorder [Unknown]
  - Fear [Unknown]
  - Dyskinesia [Not Recovered/Not Resolved]
  - Aggression [Not Recovered/Not Resolved]
  - Hallucination, visual [Unknown]
  - Muscle twitching [Unknown]
  - Product use in unapproved indication [Unknown]
  - Brain injury [Not Recovered/Not Resolved]
  - Bedridden [Not Recovered/Not Resolved]
  - Speech disorder [Not Recovered/Not Resolved]
  - Substance-induced psychotic disorder [Not Recovered/Not Resolved]
  - Hallucination, auditory [Not Recovered/Not Resolved]
  - Apallic syndrome [Not Recovered/Not Resolved]
  - Abnormal behaviour [Not Recovered/Not Resolved]
  - Crying [Unknown]
  - Hallucination [Not Recovered/Not Resolved]
  - Dyspnoea [Unknown]
  - Oropharyngeal pain [Unknown]
